FAERS Safety Report 8275027-2 (Version None)
Quarter: 2012Q2

REPORT INFORMATION
  Report Type: 
  Country: None (occurrence: None)
  Receive Date: 20120411
  Receipt Date: 20120404
  Transmission Date: 20120825
  Serious: Yes (Hospitalization)
  Sender: FDA-Public Use
  Company Number: US-US-EMD SERONO, INC.-7123194

PATIENT
  Sex: Female
  Weight: 59 kg

DRUGS (8)
  1. REBIF [Suspect]
     Indication: MULTIPLE SCLEROSIS
     Route: 058
     Dates: start: 20070124, end: 20110601
  2. MAXZIDE [Concomitant]
     Indication: PRODUCT USED FOR UNKNOWN INDICATION
     Dosage: 75-80 MG
  3. AMBIEN [Concomitant]
     Indication: SLEEP DISORDER
     Route: 048
  4. HORMONE REPLACEMENT THERAPY [Suspect]
     Indication: PRODUCT USED FOR UNKNOWN INDICATION
  5. WELCHOL [Concomitant]
     Indication: PRODUCT USED FOR UNKNOWN INDICATION
  6. REBIF [Suspect]
     Route: 058
     Dates: start: 20120404
  7. KLONOPIN [Concomitant]
     Indication: ANXIETY
     Route: 048
  8. NEURONTIN [Concomitant]
     Indication: PAIN
     Route: 048

REACTIONS (1)
  - BREAST CANCER METASTATIC [None]
